FAERS Safety Report 9439186 (Version 1)
Quarter: 2013Q3

REPORT INFORMATION
  Report Type: Spontaneous
  Country: GB (occurrence: GB)
  Receive Date: 20130803
  Receipt Date: 20130803
  Transmission Date: 20140515
  Serious: Yes (Other)
  Sender: FDA-Public Use
  Company Number: GB-B.I. PHARMACEUTICALS,INC./RIDGEFIELD-2013-BI-22983GD

PATIENT
  Age: 74 Year
  Sex: Female
  Weight: 146 kg

DRUGS (6)
  1. PRADAXA [Suspect]
     Indication: ATRIAL FIBRILLATION
     Route: 048
  2. PRADAXA [Suspect]
     Indication: CARDIAC FAILURE
  3. NIFEDIPINE [Suspect]
  4. METOPROLOL [Suspect]
  5. LISINOPRIL [Suspect]
  6. FUROSEMIDE [Suspect]
     Route: 042

REACTIONS (4)
  - Gastrointestinal haemorrhage [Recovered/Resolved]
  - Anticoagulation drug level above therapeutic [Recovered/Resolved]
  - Thrombin time prolonged [Recovered/Resolved]
  - Drug interaction [Unknown]
